FAERS Safety Report 5258109-9 (Version None)
Quarter: 2007Q1

REPORT INFORMATION
  Report Type: 
  Country: None (occurrence: None)
  Receive Date: 20070307
  Receipt Date: 20070223
  Transmission Date: 20070707
  Serious: Yes (Hospitalization)
  Sender: FDA-Public Use
  Company Number: DE-PFIZER INC-2007009285

PATIENT
  Sex: Male
  Weight: 84 kg

DRUGS (13)
  1. SU-011,248 [Suspect]
     Indication: METASTATIC RENAL CELL CARCINOMA
     Route: 048
  2. ALLOPURINOL [Concomitant]
  3. CODEINE [Concomitant]
     Dates: start: 20051101
  4. IBUPROFEN [Concomitant]
     Dates: start: 20051201, end: 20060101
  5. NIFEDIPINE [Concomitant]
     Dosage: TEXT:SINGLE DOSE
     Dates: start: 20060111, end: 20060111
  6. COTRIM [Concomitant]
     Dates: start: 20060206, end: 20060210
  7. RAMIPRIL [Concomitant]
     Dosage: TEXT:2.5 MG
     Dates: start: 20060123, end: 20060305
  8. RAMIPRIL [Concomitant]
     Dosage: TEXT:5 MG
     Dates: start: 20060306
  9. METAMIZOLE [Concomitant]
     Dates: start: 20060620, end: 20060620
  10. METOCLOPRAMIDE [Concomitant]
     Dates: start: 20060901
  11. UREA [Concomitant]
     Dates: start: 20060907
  12. VITAMIN B-12 [Concomitant]
     Dates: start: 20070101
  13. PANTOPRAZOL [Concomitant]
     Dates: start: 20070101

REACTIONS (2)
  - ABDOMINAL PAIN [None]
  - DUODENAL ULCER [None]
